FAERS Safety Report 21282992 (Version 2)
Quarter: 2022Q3

REPORT INFORMATION
  Report Type: Other
  Country: US (occurrence: None)
  Receive Date: 20220901
  Receipt Date: 20220915
  Transmission Date: 20221026
  Serious: No
  Sender: FDA-Public Use
  Company Number: US-ROCHE-3166356

PATIENT
  Sex: Female

DRUGS (2)
  1. OCREVUS [Suspect]
     Active Substance: OCRELIZUMAB
     Indication: Relapsing-remitting multiple sclerosis
     Dosage: NO, INFUSE 300MG ON DAYS 1 AND 15, INFUSE 600MG IV EVERY 6 MONTHS, DATE OF TREATMENT: 13/MAR/2020, 0
     Route: 042
     Dates: start: 20200313, end: 20211118
  2. OCREVUS [Suspect]
     Active Substance: OCRELIZUMAB
     Route: 042
     Dates: start: 202112

REACTIONS (1)
  - JC polyomavirus test positive [Unknown]
